FAERS Safety Report 8799674 (Version 2)
Quarter: 2012Q4

REPORT INFORMATION
  Report Type: 
  Country: DE (occurrence: DE)
  Receive Date: 20120919
  Receipt Date: 20121228
  Transmission Date: 20130627
  Serious: Yes (Hospitalization)
  Sender: FDA-Public Use
  Company Number: DE-009507513-1209DEU005802

PATIENT
  Age: 62 Year
  Sex: Male
  Weight: 54 kg

DRUGS (5)
  1. VICTRELIS [Suspect]
     Indication: CHRONIC HEPATITIS C
     Dosage: 800 mg, tid
     Route: 048
     Dates: start: 201207, end: 201208
  2. COPEGUS [Suspect]
     Indication: CHRONIC HEPATITIS C
     Dosage: UNK
     Route: 048
     Dates: start: 201206
  3. COPEGUS [Suspect]
     Dosage: 400 mg, bid
  4. PEGASYS [Suspect]
     Indication: CHRONIC HEPATITIS C
     Dosage: 180 Microgram, qw
     Dates: start: 201206
  5. PEGASYS [Suspect]
     Dosage: 135 Microgram, UNK

REACTIONS (4)
  - Pancytopenia [Recovered/Resolved]
  - Atypical pneumonia [Recovered/Resolved]
  - Retinal haemorrhage [Unknown]
  - Retinopathy [Unknown]
